FAERS Safety Report 15535068 (Version 2)
Quarter: 2018Q4

REPORT INFORMATION
  Report Type: Report from Study
  Country: JP (occurrence: JP)
  Receive Date: 20181022
  Receipt Date: 20181217
  Transmission Date: 20190205
  Serious: Yes (Death, Hospitalization, Other)
  Sender: FDA-Public Use
  Company Number: JP-AMGEN-JPNCT2018146940

PATIENT
  Age: 69 Year
  Sex: Female

DRUGS (15)
  1. DARBEPOETIN ALFA [Suspect]
     Active Substance: DARBEPOETIN ALFA
     Indication: MYELODYSPLASTIC SYNDROME
     Dosage: 120 MUG, UNK
     Route: 058
     Dates: start: 20170808, end: 20170808
  2. DARBEPOETIN ALFA [Suspect]
     Active Substance: DARBEPOETIN ALFA
     Dosage: 240 MUG, QWK
     Route: 058
     Dates: start: 20170919, end: 20171031
  3. DARBEPOETIN ALFA [Suspect]
     Active Substance: DARBEPOETIN ALFA
     Dosage: 240 MUG, Q2WK
     Route: 058
     Dates: start: 20171121, end: 20171205
  4. CEFTRIAXONE SODIUM. [Concomitant]
     Active Substance: CEFTRIAXONE SODIUM
     Dosage: UNK
     Route: 065
     Dates: end: 20171017
  5. FILGRASTIM [Concomitant]
     Active Substance: FILGRASTIM
     Dosage: UNK
     Route: 065
     Dates: end: 20171024
  6. SOLU-CORTEF [Concomitant]
     Active Substance: HYDROCORTISONE SODIUM SUCCINATE
     Dosage: UNK
     Route: 065
     Dates: end: 20171114
  7. HALIZON [Concomitant]
     Active Substance: AMPHOTERICIN B
     Dosage: UNK
     Route: 048
     Dates: end: 20171106
  8. TAZOBACTAM SODIUM AND PIPERACILLIN SODIUM [Concomitant]
     Active Substance: PIPERACILLIN SODIUM\TAZOBACTAM SODIUM
     Dosage: UNK
     Route: 065
     Dates: end: 20171114
  9. NEORAL [Concomitant]
     Active Substance: CYCLOSPORINE
     Indication: MYELODYSPLASTIC SYNDROME
     Dosage: 140 MG, UNK
     Route: 048
     Dates: end: 20171117
  10. DARBEPOETIN ALFA [Suspect]
     Active Substance: DARBEPOETIN ALFA
     Dosage: 240 MUG, Q2WK
     Route: 058
     Dates: start: 20170815, end: 20170829
  11. DARBEPOETIN ALFA [Suspect]
     Active Substance: DARBEPOETIN ALFA
     Dosage: 240 MUG, UNK
     Route: 058
     Dates: start: 20171212, end: 20171212
  12. CEFEPIME DIHYDROCHLORIDE [Concomitant]
     Active Substance: CEFEPIME HYDROCHLORIDE
     Dosage: UNK
     Route: 065
     Dates: end: 20171109
  13. MEROPENEM. [Concomitant]
     Active Substance: MEROPENEM
     Dosage: UNK
     Route: 065
     Dates: end: 20171207
  14. CORTRIL [Concomitant]
     Active Substance: HYDROCORTISONE
     Indication: POSTPARTUM HYPOPITUITARISM
     Dosage: UNK
     Route: 048
     Dates: end: 20171221
  15. ACICLOVIR [Concomitant]
     Active Substance: ACYCLOVIR
     Dosage: UNK
     Route: 048
     Dates: end: 20171204

REACTIONS (8)
  - Death [Fatal]
  - Cholangitis [Recovering/Resolving]
  - Oral candidiasis [Recovering/Resolving]
  - Neutrophil count decreased [Recovering/Resolving]
  - Platelet count decreased [Recovering/Resolving]
  - Adrenal insufficiency [Recovering/Resolving]
  - Acute myeloid leukaemia [Unknown]
  - Pyrexia [Recovering/Resolving]

NARRATIVE: CASE EVENT DATE: 20170919
